FAERS Safety Report 4400032-3 (Version None)
Quarter: 2004Q3

REPORT INFORMATION
  Report Type: 
  Country: None (occurrence: None)
  Receive Date: 20040714
  Receipt Date: 20040706
  Transmission Date: 20050211
  Serious: Yes (Death)
  Sender: FDA-Public Use
  Company Number: CZ-JNJFOC-20040600506

PATIENT
  Age: 72 Year
  Sex: Male
  Weight: 76 kg

DRUGS (3)
  1. ABCIXIMAB -BLINDED (ABCIXIMAB) INJECTION [Suspect]
     Indication: ACUTE MYOCARDIAL INFARCTION
     Dosage: INTRAVENOUS
     Route: 042
     Dates: start: 20040528
  2. RETEPLASE (RETEPLASE) LYOPHILIZED POWDER [Suspect]
     Indication: ACUTE MYOCARDIAL INFARCTION
     Dosage: INTRAVENOUS
     Route: 042
     Dates: start: 20040528
  3. PLACEBO (PLACEBO) INJECTION [Suspect]
     Dosage: INTRAVENOUS
     Route: 042
     Dates: start: 20040528

REACTIONS (3)
  - CARDIOGENIC SHOCK [None]
  - DRUG INTERACTION [None]
  - ELECTROMECHANICAL DISSOCIATION [None]
